FAERS Safety Report 15471965 (Version 1)
Quarter: 2018Q4

REPORT INFORMATION
  Report Type: Report from Study
  Country: CA (occurrence: CA)
  Receive Date: 20181008
  Receipt Date: 20181008
  Transmission Date: 20190205
  Serious: No
  Sender: FDA-Public Use
  Company Number: CA-IPSEN BIOPHARMACEUTICALS, INC.-2018-14801

PATIENT
  Age: 54 Year
  Sex: Male

DRUGS (1)
  1. SOMATULINE AUTOGEL 120MG [Suspect]
     Active Substance: LANREOTIDE ACETATE
     Indication: NEUROENDOCRINE TUMOUR
     Route: 058
     Dates: start: 20170913

REACTIONS (5)
  - Asthenia [Not Recovered/Not Resolved]
  - Malaise [Not Recovered/Not Resolved]
  - Abdominal pain upper [Not Recovered/Not Resolved]
  - Faeces discoloured [Not Recovered/Not Resolved]
  - Faeces soft [Not Recovered/Not Resolved]

NARRATIVE: CASE EVENT DATE: 20180919
